FAERS Safety Report 7625694-9 (Version None)
Quarter: 2011Q3

REPORT INFORMATION
  Report Type: 
  Country: None (occurrence: None)
  Receive Date: 20110713
  Receipt Date: 20110629
  Transmission Date: 20111222
  Serious: No
  Sender: FDA-Public Use
  Company Number: DSJ-2011-06389

PATIENT
  Age: 82 Year
  Sex: Female
  Weight: 42.2 kg

DRUGS (8)
  1. DIOVAN [Concomitant]
  2. ATELEC (CILNIDIPINE) [Concomitant]
  3. EPADEL S (ETHYL ICOSAPENTATE) (ETHYL ICOSAPENTATE) [Concomitant]
  4. OLMESARTAN MEDOXOMIL [Suspect]
     Indication: ESSENTIAL HYPERTENSION
     Dosage: 20 MG, PER ORAL
     Route: 048
     Dates: start: 20100918, end: 20101016
  5. MICARDIS [Concomitant]
  6. SUNRYTHM (PILSICAINIDE HYDROCHLORIDE) (PILSICAINIDE HYDROCHLORIDE) [Concomitant]
  7. MICAMLO AP (TELMISARTAN/AMLODIPINE BESILATE) (TABLET) [Concomitant]
  8. LIVALO (ITAVASTATIN CALCIUM) (ITAVASTATIN CALCIUM) [Concomitant]

REACTIONS (1)
  - NAUSEA [None]
